FAERS Safety Report 21365096 (Version 2)
Quarter: 2022Q3

REPORT INFORMATION
  Report Type: Other
  Country: US (occurrence: None)
  Receive Date: 20220922
  Receipt Date: 20220927
  Transmission Date: 20221027
  Serious: Yes (Hospitalization, Other)
  Sender: FDA-Public Use
  Company Number: US-ROCHE-3179634

PATIENT
  Age: 43 Year
  Sex: Male
  Weight: 135.29 kg

DRUGS (2)
  1. OCREVUS [Suspect]
     Active Substance: OCRELIZUMAB
     Indication: Relapsing multiple sclerosis
     Dosage: ONGOING: YES, LAST DATE OF TREATMENT: 09/AUG/2021, ANTICIPATED DATE OF TREATMENT: 10/FEB/2022, 300 M
     Route: 042
  2. DALFAMPRIDINE [Concomitant]
     Active Substance: DALFAMPRIDINE

REACTIONS (5)
  - COVID-19 [Recovered/Resolved]
  - Therapeutic response shortened [Unknown]
  - Amnesia [Not Recovered/Not Resolved]
  - Multiple sclerosis [Unknown]
  - Pain [Unknown]

NARRATIVE: CASE EVENT DATE: 20171203
